FAERS Safety Report 12348745 (Version 3)
Quarter: 2016Q4

REPORT INFORMATION
  Report Type: Spontaneous
  Country: US (occurrence: US)
  Receive Date: 20160509
  Receipt Date: 20161108
  Transmission Date: 20170207
  Serious: No
  Sender: FDA-Public Use
  Company Number: US-GLAXOSMITHKLINE-US2016063288

PATIENT
  Age: 48 Year
  Sex: Female

DRUGS (1)
  1. LAMISIL AT CONTINUOUS SPRAY [Suspect]
     Active Substance: TERBINAFINE HYDROCHLORIDE
     Indication: TINEA PEDIS
     Dosage: 1 DF, BID
     Route: 061

REACTIONS (6)
  - Dry skin [Recovering/Resolving]
  - Drug ineffective [Unknown]
  - Incorrect drug administration duration [Unknown]
  - Skin exfoliation [Recovering/Resolving]
  - Wrong technique in product usage process [Unknown]
  - Product quality issue [Unknown]
